FAERS Safety Report 6231433-9 (Version None)
Quarter: 2009Q2

REPORT INFORMATION
  Report Type: 
  Country: None (occurrence: None)
  Receive Date: 20090616
  Receipt Date: 20090610
  Transmission Date: 20091009
  Serious: Yes (Death)
  Sender: FDA-Public Use
  Company Number: MW-GILEAD-2009-0022532

PATIENT
  Age: 32 Year
  Sex: Female
  Weight: 41 kg

DRUGS (8)
  1. TRUVADA [Suspect]
     Indication: HIV INFECTION
     Route: 048
     Dates: start: 20090112, end: 20090310
  2. STOCRIN [Suspect]
     Indication: HIV INFECTION
     Dates: start: 20090112, end: 20090310
  3. ISONIAZID [Concomitant]
  4. RIFAMPICIN [Concomitant]
  5. FLUCONAZOLE [Concomitant]
  6. INDOMETHACIN [Concomitant]
  7. DEPO-PROVERA [Concomitant]
  8. RANFERON [Concomitant]

REACTIONS (1)
  - RENAL FAILURE [None]
